FAERS Safety Report 24538532 (Version 4)
Quarter: 2024Q4

REPORT INFORMATION
  Report Type: Report from Study
  Country: CL (occurrence: CL)
  Receive Date: 20241023
  Receipt Date: 20241213
  Transmission Date: 20250115
  Serious: Yes (Hospitalization)
  Sender: JOHNSON AND JOHNSON
  Company Number: CL-JNJFOC-20241058460

PATIENT
  Age: 45 Year
  Sex: Female

DRUGS (1)
  1. SIMPONI [Suspect]
     Active Substance: GOLIMUMAB
     Indication: Rheumatoid arthritis
     Dosage: LAST DRUG APPLICATION: 15-SEP-2024?50.00 MG / 0.50 ML
     Route: 058
     Dates: start: 20220126

REACTIONS (3)
  - Cholecystitis infective [Unknown]
  - Postoperative wound infection [Unknown]
  - Product label issue [Unknown]

NARRATIVE: CASE EVENT DATE: 20241030
